FAERS Safety Report 7516403-2 (Version None)
Quarter: 2011Q2

REPORT INFORMATION
  Report Type: 
  Country: None (occurrence: None)
  Receive Date: 20110601
  Receipt Date: 20110522
  Transmission Date: 20111010
  Serious: Yes (Hospitalization, Other)
  Sender: FDA-Public Use
  Company Number: US-BAYER-2011-003484

PATIENT
  Age: 23 Year
  Sex: Female
  Weight: 80 kg

DRUGS (15)
  1. NSAID'S [Concomitant]
     Dosage: UNK UNK, PRN
     Dates: start: 20030101
  2. YASMIN [Suspect]
     Indication: ACNE
     Dosage: UNK
     Dates: start: 20051001, end: 20070301
  3. YASMIN [Suspect]
     Indication: CONTRACEPTION
  4. KETOCONAZOLE [Concomitant]
  5. ASCORBIC ACID [Concomitant]
     Dosage: UNK
     Dates: start: 20020101
  6. YASMIN [Suspect]
     Indication: ABDOMINAL PAIN
  7. FEXOFENADINE [Concomitant]
     Dosage: 180 MG, QD
  8. ANTIBIOTICS [Concomitant]
  9. COTRIM [Concomitant]
  10. ULTRAM [Concomitant]
     Indication: PAIN MANAGEMENT
     Dosage: 50 MG, QD
     Dates: start: 20070220, end: 20070304
  11. MULTI-VITAMINS [Concomitant]
  12. YASMIN [Suspect]
     Indication: MENSTRUATION IRREGULAR
  13. ELOCON [Concomitant]
     Indication: ECZEMA
     Dosage: UNK
     Dates: start: 19990101
  14. NAPROXEN [Concomitant]
     Indication: PAIN MANAGEMENT
     Dosage: 500 MG, BID
     Dates: start: 20070220, end: 20070304
  15. CLINDAMYCIN [Concomitant]
     Indication: ACNE
     Dosage: UNK
     Dates: start: 20070101

REACTIONS (4)
  - DEEP VEIN THROMBOSIS [None]
  - INJURY [None]
  - FEAR [None]
  - ANXIETY [None]
